FAERS Safety Report 5092987-1 (Version None)
Quarter: 2006Q3

REPORT INFORMATION
  Report Type: 
  Country: None (occurrence: None)
  Receive Date: 20060830
  Receipt Date: 20060731
  Transmission Date: 20061208
  Serious: Yes (Hospitalization)
  Sender: FDA-Public Use
  Company Number: JP-JPN-A200602894

PATIENT
  Age: 77 Year
  Sex: Female

DRUGS (5)
  1. PAXIL [Suspect]
     Indication: PANIC DISORDER
     Dosage: 30MG PER DAY
     Route: 048
     Dates: start: 20060228, end: 20060729
  2. BLOPRESS [Concomitant]
     Indication: HYPERTENSION
     Dosage: 12MG PER DAY
     Route: 048
  3. CEREKINON [Concomitant]
     Dosage: 300MG PER DAY
     Route: 048
  4. SPIROPENT [Concomitant]
     Dosage: 20MG PER DAY
     Route: 048
  5. ACTOS [Concomitant]
     Indication: DIABETES MELLITUS
     Dosage: 30MG PER DAY
     Route: 048

REACTIONS (14)
  - ABNORMAL BEHAVIOUR [None]
  - CHILLS [None]
  - DECREASED APPETITE [None]
  - DIARRHOEA [None]
  - DYSKINESIA [None]
  - FAECAL INCONTINENCE [None]
  - HALLUCINATION [None]
  - ILL-DEFINED DISORDER [None]
  - PAIN [None]
  - PYREXIA [None]
  - SEROTONIN SYNDROME [None]
  - SPEECH DISORDER [None]
  - TREMOR [None]
  - URINARY RETENTION [None]
